FAERS Safety Report 7516696-1 (Version None)
Quarter: 2011Q2

REPORT INFORMATION
  Report Type: 
  Country: None (occurrence: None)
  Receive Date: 20110601
  Receipt Date: 20110520
  Transmission Date: 20111010
  Serious: Yes (Hospitalization)
  Sender: FDA-Public Use
  Company Number: CA-BAYER-201022275NA

PATIENT
  Age: 69 Year
  Sex: Male

DRUGS (10)
  1. SORAFENIB (RAF KINASE INHIBITOR) [Suspect]
     Indication: HEPATIC NEOPLASM MALIGNANT
     Route: 048
  2. PANTOPRAZOLE [Concomitant]
     Route: 048
     Dates: start: 20100511
  3. ERLOTINIB HYDROCHLORIDE [Suspect]
     Indication: HEPATIC NEOPLASM MALIGNANT
  4. LORAZEPAM [Concomitant]
     Route: 048
     Dates: start: 20100511
  5. FUROSEMIDE [Concomitant]
     Route: 048
     Dates: start: 20100511
  6. ACETAMINOPHEN [Concomitant]
     Dosage: 2 TABS Q 4 HOURS
     Route: 048
     Dates: start: 20100511
  7. CALCIUM CARBONATE W/COLECALCIFEROL [Concomitant]
     Dosage: 500 MG - 400 U QD WITH BREAKFAST
     Route: 048
     Dates: start: 20100511
  8. VALSARTAN [Concomitant]
     Route: 048
     Dates: start: 20100511
  9. DIMENHYDRINATE [Concomitant]
     Dosage: Q 6 HOURS
     Route: 048
     Dates: start: 20100511
  10. NADOLOL [Concomitant]
     Route: 048
     Dates: start: 20100511

REACTIONS (3)
  - HEPATIC ENCEPHALOPATHY [None]
  - DIARRHOEA [None]
  - BLOOD BILIRUBIN INCREASED [None]
